FAERS Safety Report 11161143 (Version 1)
Quarter: 2015Q2

REPORT INFORMATION
  Report Type: Spontaneous
  Country: US (occurrence: US)
  Receive Date: 20150604
  Receipt Date: 20150604
  Transmission Date: 20150821
  Serious: No
  Sender: FDA-Public Use
  Company Number: US-SA-2014SA074318

PATIENT
  Age: 64 Year
  Sex: Female

DRUGS (18)
  1. METAMUCIL [Concomitant]
     Active Substance: PLANTAGO SEED
  2. IRON [Concomitant]
     Active Substance: IRON
  3. VITAMIN B12 [Concomitant]
     Active Substance: CYANOCOBALAMIN
  4. LANTUS SOLOSTAR [Suspect]
     Active Substance: INSULIN GLARGINE
     Dosage: DOSE:44 UNIT(S)
     Route: 058
     Dates: start: 20101231
  5. SOLOSTAR [Suspect]
     Active Substance: DEVICE
     Dates: start: 20101231
  6. ELAVIL [Concomitant]
     Active Substance: AMITRIPTYLINE HYDROCHLORIDE
  7. NIASPAN [Concomitant]
     Active Substance: NIACIN
  8. CRESTOR [Concomitant]
     Active Substance: ROSUVASTATIN CALCIUM
  9. GLYBURIDE. [Concomitant]
     Active Substance: GLYBURIDE
  10. LISINOPRIL. [Concomitant]
     Active Substance: LISINOPRIL
  11. SKELAXIN [Concomitant]
     Active Substance: METAXALONE
     Dosage: DOSE: 800 MG; FREQUENCY: 2/3 DAILY
  12. HYDROXYZINE [Concomitant]
     Active Substance: HYDROXYZINE\HYDROXYZINE HYDROCHLORIDE
  13. COENZYME Q10 [Concomitant]
     Active Substance: UBIDECARENONE
  14. OMEPRAZOLE. [Concomitant]
     Active Substance: OMEPRAZOLE
  15. FISH OIL [Concomitant]
     Active Substance: FISH OIL
  16. ASPIRIN. [Concomitant]
     Active Substance: ASPIRIN
  17. ACTEMRA [Concomitant]
     Active Substance: TOCILIZUMAB
     Route: 042
  18. VITAMIN D [Concomitant]
     Active Substance: CHOLECALCIFEROL
     Dosage: DOSE:2000 UNIT(S)

REACTIONS (1)
  - Blood glucose decreased [Unknown]

NARRATIVE: CASE EVENT DATE: 201405
